FAERS Safety Report 23231345 (Version 1)
Quarter: 2023Q4

REPORT INFORMATION
  Report Type: Spontaneous
  Country: US (occurrence: None)
  Receive Date: 20231124
  Receipt Date: 20231124
  Transmission Date: 20240109
  Serious: Yes (Other)
  Sender: FDA-Public Use
  Company Number: None

PATIENT
  Age: 58 Year
  Sex: Male
  Weight: 121.5 kg

DRUGS (5)
  1. XIAFLEX [Suspect]
     Active Substance: COLLAGENASE CLOSTRIDIUM HISTOLYTICUM
     Indication: Dupuytren^s contracture
     Dates: start: 20230530, end: 20230530
  2. BP [Concomitant]
     Active Substance: CYCLOMETHICONE 5
  3. meds [Concomitant]
  4. EZETIMIBE [Concomitant]
     Active Substance: EZETIMIBE
  5. clopidagril [Concomitant]

REACTIONS (5)
  - Complex regional pain syndrome [None]
  - Trigger finger [None]
  - Nerve injury [None]
  - Visual impairment [None]
  - Product complaint [None]

NARRATIVE: CASE EVENT DATE: 20230530
